FAERS Safety Report 19095741 (Version 1)
Quarter: 2021Q2

REPORT INFORMATION
  Report Type: Spontaneous
  Country: FR (occurrence: FR)
  Receive Date: 20210406
  Receipt Date: 20210406
  Transmission Date: 20210717
  Serious: Yes (Hospitalization, Other)
  Sender: FDA-Public Use
  Company Number: FR-AMGEN-FRASP2021050492

PATIENT
  Age: 47 Year
  Sex: Female
  Weight: 44 kg

DRUGS (1)
  1. MVASI [Suspect]
     Active Substance: BEVACIZUMAB-AWWB
     Indication: SQUAMOUS CELL CARCINOMA OF THE CERVIX
     Dosage: 400 MILLIGRAM
     Route: 041
     Dates: start: 20200806, end: 20201224

REACTIONS (3)
  - Intestinal obstruction [Recovered/Resolved with Sequelae]
  - Peritonitis [Recovered/Resolved with Sequelae]
  - Large intestine perforation [Recovered/Resolved with Sequelae]

NARRATIVE: CASE EVENT DATE: 20201226
